FAERS Safety Report 9262589 (Version 1)
Quarter: 2013Q2

REPORT INFORMATION
  Report Type: Spontaneous
  Country: US (occurrence: US)
  Receive Date: 20130430
  Receipt Date: 20130430
  Transmission Date: 20140414
  Serious: Yes (Other)
  Sender: FDA-Public Use
  Company Number: US-ROCHE-1217173

PATIENT
  Sex: Female
  Weight: 39.04 kg

DRUGS (10)
  1. PEGASYS [Suspect]
     Indication: CHRONIC HEPATITIS C
     Route: 058
     Dates: start: 20130402
  2. RIBAVIRIN [Suspect]
     Indication: CHRONIC HEPATITIS C
     Dosage: DIVIDED DOSES 600 BY 600
     Route: 065
     Dates: start: 20130402
  3. RIBAVIRIN [Suspect]
     Dosage: 400 BY 600
     Route: 065
  4. TELAPREVIR [Interacting]
     Indication: CHRONIC HEPATITIS C
     Route: 065
     Dates: start: 20130402
  5. MORPHINE [Interacting]
     Indication: PAIN
     Route: 065
  6. OXYCONTIN [Concomitant]
     Indication: PAIN
  7. TRAZODONE [Concomitant]
  8. ZOLOFT [Concomitant]
  9. DILANTIN [Concomitant]
     Indication: CONVULSION
  10. KLONOPIN [Concomitant]
     Indication: CONVULSION

REACTIONS (13)
  - Dyspnoea [Unknown]
  - Depression [Unknown]
  - Chronic obstructive pulmonary disease [Unknown]
  - Joint dislocation [Unknown]
  - Fall [Unknown]
  - Headache [Unknown]
  - Mass [Unknown]
  - Convulsion [Unknown]
  - Insomnia [Unknown]
  - Salivary hypersecretion [Unknown]
  - Decreased appetite [Unknown]
  - Weight decreased [Unknown]
  - Drug interaction [Unknown]
